FAERS Safety Report 26041498 (Version 2)
Quarter: 2025Q4

REPORT INFORMATION
  Report Type: Report from Study
  Country: US (occurrence: US)
  Receive Date: 20251113
  Receipt Date: 20251204
  Transmission Date: 20260118
  Serious: Yes (Death, Hospitalization)
  Sender: OTSUKA
  Company Number: US-MMM-Otsuka-D98JUVRW

PATIENT
  Sex: Female

DRUGS (12)
  1. BREXPIPRAZOLE [Suspect]
     Active Substance: BREXPIPRAZOLE
     Indication: Dementia Alzheimer^s type
     Dosage: 1 MG, QD IN THE MORNING
     Dates: start: 2025, end: 20250805
  2. BREXPIPRAZOLE [Suspect]
     Active Substance: BREXPIPRAZOLE
     Indication: Agitation
  3. ASPIRIN [Concomitant]
     Active Substance: ASPIRIN
     Indication: Product used for unknown indication
     Dosage: 81 MG, DAILY
     Dates: end: 20250927
  4. CYANOCOBALAMIN [Concomitant]
     Active Substance: CYANOCOBALAMIN
     Indication: Product used for unknown indication
     Dosage: 1000 ?G, DAILY
     Dates: end: 20250927
  5. COLACE [Concomitant]
     Active Substance: DOCUSATE SODIUM
     Indication: Product used for unknown indication
     Dosage: 100 MG, DAILY PRN
     Dates: end: 20250927
  6. ARICEPT [Concomitant]
     Active Substance: DONEPEZIL HYDROCHLORIDE
     Indication: Product used for unknown indication
     Dosage: 5 MG, QD
     Dates: start: 20240920, end: 20250620
  7. IBUPROFEN [Concomitant]
     Active Substance: IBUPROFEN
     Indication: Pain
     Dosage: 200 MG, Q4HR AS NEEDED
     Dates: start: 20220228, end: 20251002
  8. IBUPROFEN [Concomitant]
     Active Substance: IBUPROFEN
     Dosage: 200 MG, Q4HR AS NEEDED
  9. PRILOSEC [Concomitant]
     Active Substance: OMEPRAZOLE MAGNESIUM
     Indication: Dyspepsia
     Dosage: 20 MG, DAILY AS NEEDED
     Dates: end: 20251027
  10. PROBIOTICS NOS [Concomitant]
     Active Substance: PROBIOTICS NOS
     Indication: Product used for unknown indication
     Dosage: 1 DF, DAILY (IN THE MORNING)
     Dates: end: 20251027
  11. PROBIOTICS NOSQ [Concomitant]
     Indication: Product used for unknown indication
     Dosage: APPLY 1 APPLICATION TO AFFECTED AREA BID
     Dates: start: 20240226, end: 20251027
  12. PROBIOTICS NOSQ [Concomitant]
     Indication: Product used for unknown indication
     Dosage: 1 DF, DAILY
     Dates: end: 20250927

REACTIONS (3)
  - Pelvic fracture [Fatal]
  - Fall [Fatal]
  - Product use in unapproved indication [Unknown]

NARRATIVE: CASE EVENT DATE: 20250101
